FAERS Safety Report 10169010 (Version 2)
Quarter: 2014Q2

REPORT INFORMATION
  Report Type: Spontaneous
  Country: US (occurrence: US)
  Receive Date: 20140513
  Receipt Date: 20140513
  Transmission Date: 20141212
  Serious: Yes (Death, Other)
  Sender: FDA-Public Use
  Company Number: US-ASTELLAS-2014US003469

PATIENT
  Sex: Male

DRUGS (2)
  1. XTANDI [Suspect]
     Indication: PROSTATE CANCER
     Route: 048
     Dates: start: 20140326, end: 20140329
  2. XTANDI [Suspect]
     Route: 048
     Dates: start: 20140401

REACTIONS (7)
  - Death [Fatal]
  - Malignant neoplasm progression [Unknown]
  - Oropharyngeal pain [Recovered/Resolved]
  - Anxiety [Unknown]
  - Insomnia [Not Recovered/Not Resolved]
  - Stomatitis [Recovered/Resolved]
  - Psychomotor hyperactivity [Not Recovered/Not Resolved]
